FAERS Safety Report 9231993 (Version 2)
Quarter: 2013Q2

REPORT INFORMATION
  Report Type: Spontaneous
  Country: US (occurrence: US)
  Receive Date: 20130415
  Receipt Date: 20130509
  Transmission Date: 20140414
  Serious: No
  Sender: FDA-Public Use
  Company Number: US-PFIZER INC-2013115575

PATIENT
  Age: 60 Year
  Sex: Female
  Weight: 147 kg

DRUGS (2)
  1. ADVIL [Suspect]
     Indication: MUSCULOSKELETAL STIFFNESS
     Dosage: 200 MG, UNK
     Route: 048
     Dates: start: 201303
  2. SPIRONOLACTONE [Concomitant]
     Dosage: UNK

REACTIONS (4)
  - Wrong technique in drug usage process [Unknown]
  - Somnolence [Unknown]
  - Oral discomfort [Unknown]
  - Glossodynia [Unknown]
